FAERS Safety Report 25614387 (Version 1)
Quarter: 2025Q3

REPORT INFORMATION
  Report Type: Spontaneous
  Country: CN (occurrence: CN)
  Receive Date: 20250729
  Receipt Date: 20250729
  Transmission Date: 20251020
  Serious: Yes (Life-Threatening, Hospitalization, Other)
  Sender: ABBVIE
  Company Number: CN-ABBVIE-6385320

PATIENT
  Age: 48 Year
  Sex: Female

DRUGS (2)
  1. VENETOCLAX [Suspect]
     Active Substance: VENETOCLAX
     Indication: Acute myeloid leukaemia recurrent
     Dosage: 100 MILLIGRAM
     Route: 048
     Dates: start: 20250623, end: 20250704
  2. AZACITIDINE [Suspect]
     Active Substance: AZACITIDINE
     Indication: Acute myeloid leukaemia recurrent
     Dosage: 125 MILLIGRAM + STERILE WATER FOR INJECTION 4ML
     Route: 058
     Dates: start: 20250625, end: 20250629

REACTIONS (9)
  - Platelet count decreased [Recovering/Resolving]
  - Mouth ulceration [Recovering/Resolving]
  - Myelosuppression [Recovering/Resolving]
  - Dysphonia [Recovering/Resolving]
  - Granulocyte count decreased [Recovering/Resolving]
  - Pyrexia [Unknown]
  - Immunodeficiency [Unknown]
  - White blood cell count decreased [Not Recovered/Not Resolved]
  - Disease risk factor [Unknown]

NARRATIVE: CASE EVENT DATE: 20250101
